FAERS Safety Report 5321331-7 (Version None)
Quarter: 2007Q2

REPORT INFORMATION
  Report Type: 
  Country: None (occurrence: None)
  Receive Date: 20070507
  Receipt Date: 20070507
  Transmission Date: 20071010
  Serious: Yes (Hospitalization)
  Sender: FDA-Public Use
  Company Number: None

PATIENT
  Age: 51 Year
  Sex: Male
  Weight: 123.1 kg

DRUGS (1)
  1. LITHIUM CARBONATE [Suspect]
     Indication: AFFECTIVE DISORDER
     Dosage: 600 MG PO BID WITH FOOD
     Route: 048
     Dates: start: 20050304, end: 20070123

REACTIONS (6)
  - BLOOD CREATININE INCREASED [None]
  - DIARRHOEA [None]
  - HYPONATRAEMIA [None]
  - NAUSEA [None]
  - ORAL INTAKE REDUCED [None]
  - VOMITING [None]
